FAERS Safety Report 21412605 (Version 1)
Quarter: 2022Q4

REPORT INFORMATION
  Report Type: Spontaneous
  Country: US (occurrence: US)
  Receive Date: 20221005
  Receipt Date: 20221005
  Transmission Date: 20230112
  Serious: No
  Sender: FDA-Public Use
  Company Number: US-ELI_LILLY_AND_COMPANY-US202209006550

PATIENT
  Age: 71 Year
  Sex: Female

DRUGS (1)
  1. BEBTELOVIMAB [Suspect]
     Active Substance: BEBTELOVIMAB
     Indication: Product used for unknown indication
     Dosage: 175 MG, SINGLE
     Route: 042
     Dates: start: 20220910, end: 20220910

REACTIONS (4)
  - Respiratory tract congestion [Unknown]
  - Dysphagia [Unknown]
  - Oropharyngeal pain [Unknown]
  - Dyspnoea [Unknown]

NARRATIVE: CASE EVENT DATE: 20220911
